FAERS Safety Report 24558842 (Version 2)
Quarter: 2024Q4

REPORT INFORMATION
  Report Type: Spontaneous
  Country: RS (occurrence: RS)
  Receive Date: 20241029
  Receipt Date: 20241104
  Transmission Date: 20250115
  Serious: Yes (Other)
  Sender: BRISTOL-MYERS SQUIBB COMPANY
  Company Number: RS-BRISTOL-MYERS SQUIBB COMPANY-2024-167032

PATIENT
  Age: 42 Year
  Sex: Male

DRUGS (1)
  1. OPDIVO [Suspect]
     Active Substance: NIVOLUMAB
     Indication: Clear cell renal cell carcinoma
     Dosage: 14 CYCLES
     Route: 042
     Dates: start: 20230424, end: 20240624

REACTIONS (4)
  - Thrombocytopenia [Unknown]
  - Bronchiolitis [Unknown]
  - Thrombosis [Unknown]
  - Pemphigoid [Unknown]

NARRATIVE: CASE EVENT DATE: 20230101
